FAERS Safety Report 13464333 (Version 1)
Quarter: 2017Q2

REPORT INFORMATION
  Report Type: Spontaneous
  Country: US (occurrence: US)
  Receive Date: 20170420
  Receipt Date: 20170420
  Transmission Date: 20170830
  Serious: Yes (Other)
  Sender: FDA-Public Use
  Company Number: US-ROCHE-722721

PATIENT
  Age: 23 Year
  Sex: Male
  Weight: 54.4 kg

DRUGS (2)
  1. ACCUTANE [Suspect]
     Active Substance: ISOTRETINOIN
     Route: 048
     Dates: start: 20020425, end: 20020925
  2. ACCUTANE [Suspect]
     Active Substance: ISOTRETINOIN
     Indication: ACNE
     Route: 048
     Dates: start: 2000, end: 2001

REACTIONS (5)
  - Gastrointestinal injury [Unknown]
  - Acne [Unknown]
  - Crohn^s disease [Unknown]
  - Inflammatory bowel disease [Unknown]
  - Xerosis [Unknown]

NARRATIVE: CASE EVENT DATE: 20020523
